FAERS Safety Report 15442190 (Version 1)
Quarter: 2018Q3

REPORT INFORMATION
  Report Type: Report from Study
  Country: US (occurrence: US)
  Receive Date: 20180928
  Receipt Date: 20180928
  Transmission Date: 20181010
  Serious: No
  Sender: FDA-Public Use
  Company Number: US-AMGEN-USASL2018057569

PATIENT
  Sex: Female

DRUGS (6)
  1. PROLIA [Suspect]
     Active Substance: DENOSUMAB
     Indication: OSTEOPENIA
  2. CALCIUM [Concomitant]
     Active Substance: CALCIUM
  3. VITAMIN D [Concomitant]
     Active Substance: CHOLECALCIFEROL
  4. PROLIA [Suspect]
     Active Substance: DENOSUMAB
     Indication: OSTEOPOROTIC FRACTURE
     Dosage: 60 MG, Q6MO
     Route: 058
  5. PROLIA [Suspect]
     Active Substance: DENOSUMAB
     Indication: CONGENITAL SPONDYLOLYSIS
  6. PROLIA [Suspect]
     Active Substance: DENOSUMAB
     Indication: BONE DISORDER

REACTIONS (1)
  - Off label use [Unknown]
